FAERS Safety Report 18068477 (Version 2)
Quarter: 2021Q3

REPORT INFORMATION
  Report Type: Report from Study
  Country: CA (occurrence: CA)
  Receive Date: 20200724
  Receipt Date: 20210812
  Transmission Date: 20211014
  Serious: Yes (Other)
  Sender: FDA-Public Use
  Company Number: CA-SAMSUNG BIOEPIS-SB-2020-23435

PATIENT
  Age: 35 Year
  Sex: Female

DRUGS (2)
  1. SULFASALAZINE. [Concomitant]
     Active Substance: SULFASALAZINE
     Indication: PRODUCT USED FOR UNKNOWN INDICATION
     Dosage: 4 TABLETS DAILY
     Route: 065
  2. RENFLEXIS [Suspect]
     Active Substance: INFLIXIMAB-ABDA
     Indication: COLITIS ULCERATIVE
     Route: 042
     Dates: start: 20191108

REACTIONS (6)
  - Immunodeficiency [Unknown]
  - Abdominal pain [Unknown]
  - Diarrhoea [Unknown]
  - Stress [Unknown]
  - Product use issue [Unknown]
  - Anxiety [Unknown]
